FAERS Safety Report 25499966 (Version 1)
Quarter: 2025Q3

REPORT INFORMATION
  Report Type: Spontaneous
  Country: EU (occurrence: EU)
  Receive Date: 20250701
  Receipt Date: 20250701
  Transmission Date: 20251021
  Serious: Yes (Other)
  Sender: AUROBINDO
  Company Number: EU-MLMSERVICE-20250609-PI539054-00149-1

PATIENT
  Age: 81 Year
  Sex: Male

DRUGS (2)
  1. FLECAINIDE [Suspect]
     Active Substance: FLECAINIDE
     Indication: Sinus node dysfunction
     Dosage: 100 MILLIGRAM, 3 TIMES A DAY
     Route: 065
  2. ATENOLOL [Concomitant]
     Active Substance: ATENOLOL
     Indication: Sinus node dysfunction
     Dosage: 50 MILLIGRAM, ONCE A DAY
     Route: 065

REACTIONS (4)
  - Electrocardiogram QRS complex prolonged [Unknown]
  - Ventricular tachycardia [Unknown]
  - Arrhythmia supraventricular [Unknown]
  - Toxicity to various agents [Unknown]
